FAERS Safety Report 9203537 (Version 3)
Quarter: 2013Q2

REPORT INFORMATION
  Report Type: Spontaneous
  Country: JP (occurrence: JP)
  Receive Date: 20130402
  Receipt Date: 20130415
  Transmission Date: 20140414
  Serious: Yes (Other)
  Sender: FDA-Public Use
  Company Number: PHHY2013JP031037

PATIENT
  Age: 79 Year
  Sex: 0
  Weight: 60 kg

DRUGS (4)
  1. NEORAL [Suspect]
     Indication: INTERSTITIAL LUNG DISEASE
  2. PREDONINE [Concomitant]
     Indication: INTERSTITIAL LUNG DISEASE
  3. ORAL MEDICATION FOR HYPERTENSION [Concomitant]
  4. INSULIN [Concomitant]
     Indication: DIABETES MELLITUS

REACTIONS (6)
  - Pneumatosis intestinalis [Recovering/Resolving]
  - Abdominal pain lower [Unknown]
  - Abdominal distension [Recovering/Resolving]
  - Tenderness [Unknown]
  - Inflammation [Unknown]
  - Emphysema [Recovered/Resolved]
